FAERS Safety Report 9105572 (Version 1)
Quarter: 2013Q1

REPORT INFORMATION
  Report Type: Spontaneous
  Country: US (occurrence: US)
  Receive Date: 20130221
  Receipt Date: 20130221
  Transmission Date: 20140127
  Serious: No
  Sender: FDA-Public Use
  Company Number: US-TEVA-335782USA

PATIENT
  Age: 67 Year
  Sex: Male

DRUGS (4)
  1. TREANDA [Suspect]
     Indication: LYMPHOMA
     Route: 042
     Dates: start: 201108, end: 201108
  2. RITUXIMAB [Concomitant]
     Indication: LYMPHOMA
  3. VALACICLOVIR [Concomitant]
     Indication: PROPHYLAXIS
     Route: 048
  4. LUPURIN [Concomitant]
     Dosage: 300 MILLIGRAM DAILY;
     Route: 048

REACTIONS (2)
  - Neutrophil count decreased [Unknown]
  - Platelet count decreased [Unknown]
